FAERS Safety Report 9555510 (Version 5)
Quarter: 2021Q1

REPORT INFORMATION
  Report Type: Report from Study
  Country: US (occurrence: US)
  Receive Date: 20130926
  Receipt Date: 20210114
  Transmission Date: 20210420
  Serious: Yes (Hospitalization, Disabling, Other)
  Sender: FDA-Public Use
  Company Number: US-SANOFI-AVENTIS-2013SA093122

PATIENT
  Age: 73 Year
  Sex: Female

DRUGS (4)
  1. CHOLESTEROL [Concomitant]
     Active Substance: CHOLESTEROL
     Dosage: UNK
  2. INSULIN GLARGINE [Suspect]
     Active Substance: INSULIN GLARGINE
     Indication: TYPE 2 DIABETES MELLITUS
     Dosage: 20 IU, QD
     Route: 058
  3. POTASSIUM [Concomitant]
     Active Substance: POTASSIUM
     Dosage: UNK
  4. METFORMIN HYDROCHLORIDE. [Suspect]
     Active Substance: METFORMIN HYDROCHLORIDE
     Dosage: UNK

REACTIONS (10)
  - Muscular weakness [Not Recovered/Not Resolved]
  - Illness [Unknown]
  - Urinary tract infection [Unknown]
  - Sinusitis [Unknown]
  - Wound infection [Not Recovered/Not Resolved]
  - Tooth abscess [Unknown]
  - Hyperkeratosis [Unknown]
  - Neuropathy peripheral [Unknown]
  - Abdominal discomfort [Not Recovered/Not Resolved]
  - General physical health deterioration [Not Recovered/Not Resolved]
